FAERS Safety Report 14356366 (Version 1)
Quarter: 2018Q1

REPORT INFORMATION
  Report Type: Spontaneous
  Country: US (occurrence: US)
  Receive Date: 20180105
  Receipt Date: 20180105
  Transmission Date: 20180509
  Serious: No
  Sender: FDA-Public Use
  Company Number: US-ALLERGAN-1724721US

PATIENT
  Age: 6 Decade
  Sex: Female

DRUGS (1)
  1. KYBELLA [Suspect]
     Active Substance: DEOXYCHOLIC ACID
     Indication: PRODUCT USED FOR UNKNOWN INDICATION
     Dosage: 40 MG, SINGLE
     Route: 065
     Dates: start: 20170608, end: 20170608

REACTIONS (3)
  - Skin irritation [Unknown]
  - Hypoaesthesia [Unknown]
  - Nerve injury [Unknown]

NARRATIVE: CASE EVENT DATE: 20170609
